FAERS Safety Report 7659767-1 (Version None)
Quarter: 2011Q3

REPORT INFORMATION
  Report Type: 
  Country: None (occurrence: None)
  Receive Date: 20110805
  Receipt Date: 20101117
  Transmission Date: 20111222
  Serious: No
  Sender: FDA-Public Use
  Company Number: US-ABBOTT-10P-163-0686316-00

PATIENT
  Sex: Female

DRUGS (1)
  1. DEPAKOTE ER [Suspect]
     Indication: DEPRESSION
     Dosage: 1 IN AM AND 2 AT NIGHT
     Route: 048
     Dates: start: 20101116

REACTIONS (1)
  - FATIGUE [None]
